FAERS Safety Report 11106073 (Version 2)
Quarter: 2015Q2

REPORT INFORMATION
  Report Type: Report from Study
  Country: BE (occurrence: BE)
  Receive Date: 20150512
  Receipt Date: 20150619
  Transmission Date: 20150821
  Serious: Yes (Hospitalization)
  Sender: FDA-Public Use
  Company Number: PHHY2015BE054361

PATIENT
  Age: 2 Year
  Sex: Female
  Weight: 7 kg

DRUGS (3)
  1. ILARIS [Suspect]
     Active Substance: CANAKINUMAB
     Dosage: 60 MG, (02 MONTHS)
     Route: 058
     Dates: start: 20150416
  2. MEDICOL [Concomitant]
     Indication: PRODUCT USED FOR UNKNOWN INDICATION
     Dosage: 1 MG, (1X12 DAYS)
     Route: 065
  3. ILARIS [Suspect]
     Active Substance: CANAKINUMAB
     Indication: CHRONIC INFANTILE NEUROLOGICAL CUTANEOUS AND ARTICULAR SYNDROME
     Dosage: 60 MG, (02 MONTHS)
     Route: 058
     Dates: start: 20140405

REACTIONS (8)
  - Gastroenteritis adenovirus [Recovered/Resolved]
  - Dehydration [Unknown]
  - Gastrointestinal infection [Recovered/Resolved]
  - Gastroenteritis rotavirus [Unknown]
  - Blood alkaline phosphatase increased [Unknown]
  - C-reactive protein increased [Unknown]
  - Anion gap increased [Unknown]
  - Blood bicarbonate decreased [Unknown]

NARRATIVE: CASE EVENT DATE: 20150404
